FAERS Safety Report 4841141-4 (Version None)
Quarter: 2005Q4

REPORT INFORMATION
  Report Type: 
  Country: None (occurrence: None)
  Receive Date: 20051130
  Receipt Date: 20051012
  Transmission Date: 20060501
  Serious: Yes (Hospitalization)
  Sender: FDA-Public Use
  Company Number: US-BRISTOL-MYERS SQUIBB COMPANY-13142005

PATIENT
  Age: 53 Year
  Sex: Female
  Weight: 134 kg

DRUGS (1)
  1. ABILIFY [Suspect]

REACTIONS (5)
  - ATRIAL FLUTTER [None]
  - CARDIAC FAILURE [None]
  - DIABETES MELLITUS INADEQUATE CONTROL [None]
  - EYE DISORDER [None]
  - WEIGHT INCREASED [None]
